FAERS Safety Report 17222045 (Version 3)
Quarter: 2020Q3

REPORT INFORMATION
  Report Type: Spontaneous
  Country: JP (occurrence: JP)
  Receive Date: 20200101
  Receipt Date: 20200713
  Transmission Date: 20201102
  Serious: Yes (Other)
  Sender: FDA-Public Use
  Company Number: JP-ASTRAZENECA-2019SF58703

PATIENT
  Age: 57 Year
  Sex: Male
  Weight: 59 kg

DRUGS (1)
  1. IMFINZI [Suspect]
     Active Substance: DURVALUMAB
     Indication: NON-SMALL CELL LUNG CANCER
     Route: 042
     Dates: start: 20190308, end: 20190911

REACTIONS (4)
  - Rash [Unknown]
  - Hypothyroidism [Recovering/Resolving]
  - Radiation fibrosis [Unknown]
  - Carcinoembryonic antigen increased [Unknown]

NARRATIVE: CASE EVENT DATE: 2019
